FAERS Safety Report 13686490 (Version 2)
Quarter: 2017Q3

REPORT INFORMATION
  Report Type: Spontaneous
  Country: US (occurrence: US)
  Receive Date: 20170623
  Receipt Date: 20170816
  Transmission Date: 20171127
  Serious: No
  Sender: FDA-Public Use
  Company Number: US-ASTRAZENECA-2014SE84998

PATIENT
  Sex: Female
  Weight: 72.6 kg

DRUGS (3)
  1. FARXIGA [Suspect]
     Active Substance: DAPAGLIFLOZIN PROPANEDIOL
     Indication: TYPE 2 DIABETES MELLITUS
     Dosage: UNKNOWN
     Route: 048
  2. FARXIGA [Suspect]
     Active Substance: DAPAGLIFLOZIN PROPANEDIOL
     Indication: TYPE 2 DIABETES MELLITUS
     Dosage: 10.0MG UNKNOWN
     Route: 048
  3. FARXIGA [Suspect]
     Active Substance: DAPAGLIFLOZIN PROPANEDIOL
     Indication: TYPE 2 DIABETES MELLITUS
     Dosage: 10.0MG UNKNOWN
     Route: 048
     Dates: start: 201604, end: 201704

REACTIONS (4)
  - Gait disturbance [Unknown]
  - Therapy cessation [Unknown]
  - Diabetes mellitus inadequate control [Unknown]
  - Sensory loss [Unknown]
